FAERS Safety Report 8257673-5 (Version None)
Quarter: 2012Q2

REPORT INFORMATION
  Report Type: 
  Country: None (occurrence: None)
  Receive Date: 20120403
  Receipt Date: 20120330
  Transmission Date: 20120825
  Serious: Yes (Hospitalization)
  Sender: FDA-Public Use
  Company Number: US-ROCHE-1054990

PATIENT
  Sex: Female
  Weight: 52.3 kg

DRUGS (3)
  1. GEMCITABINE HYDROCHLORIDE [Suspect]
     Indication: PANCREATIC CARCINOMA METASTATIC
     Dosage: LAST DOSE PRIOIR TO SAE 20/MAR/2012
     Dates: start: 20120207
  2. VISMODEGIB [Suspect]
     Indication: PANCREATIC CARCINOMA METASTATIC
     Dosage: LAST DOSE PRIOIR TO SAE 20/MAR/2012
     Dates: start: 20120306
  3. PACLITAXEL [Suspect]
     Indication: PANCREATIC CARCINOMA METASTATIC
     Dosage: LAST DOSE PRIOIR TO SAE 20/MAR/2012
     Dates: start: 20120207

REACTIONS (1)
  - PYREXIA [None]
